FAERS Safety Report 5690593-9 (Version None)
Quarter: 2008Q1

REPORT INFORMATION
  Report Type: 
  Country: None (occurrence: None)
  Receive Date: 20080331
  Receipt Date: 20080331
  Transmission Date: 20080703
  Serious: No
  Sender: FDA-Public Use
  Company Number: None

PATIENT
  Age: 11 Year
  Sex: Female
  Weight: 40.8237 kg

DRUGS (1)
  1. SINGULAIR [Suspect]
     Dosage: SINGULAIR

REACTIONS (5)
  - ATTENTION DEFICIT/HYPERACTIVITY DISORDER [None]
  - DEPRESSION [None]
  - ILL-DEFINED DISORDER [None]
  - MORBID THOUGHTS [None]
  - SOCIAL AVOIDANT BEHAVIOUR [None]
